FAERS Safety Report 17042280 (Version 1)
Quarter: 2019Q4

REPORT INFORMATION
  Report Type: Spontaneous
  Country: US (occurrence: US)
  Receive Date: 20191017
  Receipt Date: 20191017
  Transmission Date: 20200122
  Serious: Yes (Hospitalization)
  Sender: FDA-Public Use
  Company Number: None

PATIENT
  Age: 83 Year
  Sex: Male
  Weight: 87.6 kg

DRUGS (2)
  1. LEUPROLIDE ACETATE. [Suspect]
     Active Substance: LEUPROLIDE ACETATE
     Dates: end: 20121113
  2. CASODEX [Suspect]
     Active Substance: BICALUTAMIDE
     Dates: end: 20130210

REACTIONS (2)
  - Aphasia [None]
  - Transient ischaemic attack [None]

NARRATIVE: CASE EVENT DATE: 20190103
